FAERS Safety Report 7379797-7 (Version None)
Quarter: 2011Q1

REPORT INFORMATION
  Report Type: 
  Country: None (occurrence: None)
  Receive Date: 20110323
  Receipt Date: 20110323
  Transmission Date: 20110831
  Serious: Yes (Life-Threatening, Hospitalization, Disabling, Other)
  Sender: FDA-Public Use
  Company Number: None

PATIENT
  Age: 63 Year
  Sex: Male
  Weight: 74.8435 kg

DRUGS (2)
  1. METOLAZONE [Suspect]
     Indication: CHEST DISCOMFORT
     Dosage: 10 MG BID PO WEEK TO 10 DAYS
     Route: 048
     Dates: start: 20100815, end: 20100824
  2. METOLAZONE [Suspect]
     Indication: COUGH
     Dosage: 10 MG BID PO WEEK TO 10 DAYS
     Route: 048
     Dates: start: 20100815, end: 20100824

REACTIONS (7)
  - ELECTROLYTE IMBALANCE [None]
  - CARDIAC ARREST [None]
  - EJECTION FRACTION DECREASED [None]
  - INCORRECT DOSE ADMINISTERED [None]
  - FALL [None]
  - BLOOD POTASSIUM DECREASED [None]
  - TERMINAL STATE [None]
